FAERS Safety Report 8844712 (Version 1)
Quarter: 2012Q4

REPORT INFORMATION
  Report Type: Spontaneous
  Country: US (occurrence: None)
  Receive Date: 20121016
  Receipt Date: 20121016
  Transmission Date: 20130627
  Serious: Yes (Hospitalization)
  Sender: FDA-Public Use
  Company Number: None

PATIENT
  Age: 44 Year
  Sex: Female
  Weight: 63.63 kg

DRUGS (2)
  1. KEFLEX [Suspect]
     Indication: ABSCESS
     Route: 048
  2. KEFLEX [Suspect]
     Indication: INCISIONAL DRAINAGE
     Route: 048

REACTIONS (3)
  - Sinus tachycardia [None]
  - Body temperature increased [None]
  - Blood pressure systolic increased [None]
